FAERS Safety Report 20374548 (Version 3)
Quarter: 2022Q1

REPORT INFORMATION
  Report Type: Report from Study
  Country: KR (occurrence: KR)
  Receive Date: 20220125
  Receipt Date: 20220201
  Transmission Date: 20220423
  Serious: Yes (Hospitalization)
  Sender: FDA-Public Use
  Company Number: KR-ABBVIE-22K-090-4245969-00

PATIENT
  Age: 65 Year
  Sex: Female
  Weight: 55.3 kg

DRUGS (13)
  1. RINVOQ [Suspect]
     Active Substance: UPADACITINIB
     Indication: Rheumatoid arthritis
     Route: 048
     Dates: start: 20211101
  2. EZETIMIBE\ROSUVASTATIN [Concomitant]
     Active Substance: EZETIMIBE\ROSUVASTATIN
     Indication: Hyperlipidaemia
     Route: 048
     Dates: start: 20210428, end: 20220119
  3. DILATREND SR [Concomitant]
     Indication: Hypertension
     Route: 048
     Dates: start: 20210428
  4. AMLODIPINE OROTATE [Concomitant]
     Active Substance: AMLODIPINE OROTATE
     Indication: Hypertension
     Route: 048
     Dates: start: 20210428
  5. EDARBI [Concomitant]
     Active Substance: AZILSARTAN KAMEDOXOMIL
     Indication: Hypertension
     Route: 048
     Dates: start: 20210203
  6. HYGROTON [Concomitant]
     Active Substance: CHLORTHALIDONE
     Indication: Hypertension
     Route: 048
     Dates: start: 20191111
  7. CALCIUM CARBONATE\CHOLECALCIFEROL [Concomitant]
     Active Substance: CALCIUM CARBONATE\CHOLECALCIFEROL
     Indication: Osteopenia
     Route: 048
     Dates: start: 20211101
  8. GLIPTIDE [Concomitant]
     Indication: Prophylaxis
     Dates: start: 20211101, end: 20220103
  9. PREDNISOLONE [Concomitant]
     Active Substance: PREDNISOLONE
     Indication: Rheumatoid arthritis
     Dates: start: 20211101, end: 20211114
  10. CELEBREX [Concomitant]
     Active Substance: CELECOXIB
     Indication: Rheumatoid arthritis
     Dates: start: 20201223, end: 20210202
  11. CELEBREX [Concomitant]
     Active Substance: CELECOXIB
     Dates: start: 20210414
  12. CRESNON [Concomitant]
     Indication: Hyperlipidaemia
     Route: 048
     Dates: start: 20220120, end: 20220124
  13. EZETIMIBE [Concomitant]
     Active Substance: EZETIMIBE
     Indication: Hyperlipidaemia
     Route: 048
     Dates: start: 20220120, end: 20220124

REACTIONS (1)
  - Oedema peripheral [Recovering/Resolving]

NARRATIVE: CASE EVENT DATE: 20220110
